FAERS Safety Report 4536179-0 (Version None)
Quarter: 2004Q4

REPORT INFORMATION
  Report Type: 
  Country: None (occurrence: None)
  Receive Date: 20041223
  Receipt Date: 20041210
  Transmission Date: 20050328
  Serious: Yes (Other)
  Sender: FDA-Public Use
  Company Number: US-GLAXOSMITHKLINE-A0536853A

PATIENT
  Age: 80 Year
  Sex: Male

DRUGS (1)
  1. COREG [Suspect]
     Indication: HYPERTENSION
     Route: 048
     Dates: start: 20041201, end: 20041202

REACTIONS (2)
  - HAEMATOCRIT DECREASED [None]
  - HAEMOLYTIC ANAEMIA [None]
